FAERS Safety Report 7913733-7 (Version None)
Quarter: 2011Q4

REPORT INFORMATION
  Report Type: 
  Country: None (occurrence: None)
  Receive Date: 20111115
  Receipt Date: 20111109
  Transmission Date: 20120403
  Serious: Yes (Death, Hospitalization)
  Sender: FDA-Public Use
  Company Number: IT-CELGENEUS-083-21880-08121263

PATIENT
  Sex: Male
  Weight: 83 kg

DRUGS (11)
  1. ALLOPURINOL [Concomitant]
     Dosage: 300 MILLIGRAM
     Route: 065
  2. REVLIMID [Suspect]
     Indication: MANTLE CELL LYMPHOMA
     Dosage: 10 MILLIGRAM
     Route: 048
     Dates: start: 20081201, end: 20081215
  3. FUROSEMIDE [Concomitant]
     Indication: DIURETIC THERAPY
     Route: 041
  4. ACYCLOVIR [Concomitant]
     Indication: ANTIVIRAL PROPHYLAXIS
     Dosage: 800 MILLIGRAM
     Route: 065
  5. ALBUMIN (HUMAN) [Concomitant]
     Indication: DIURETIC THERAPY
     Route: 041
  6. DEXAMETHASONE [Suspect]
     Indication: MANTLE CELL LYMPHOMA
     Dosage: 40 MILLIGRAM
     Route: 065
     Dates: start: 20081201, end: 20081208
  7. CEFTAZIDIME [Concomitant]
     Dosage: 2 GRAM
     Route: 041
     Dates: start: 20081211, end: 20081213
  8. NEUPOGEN [Concomitant]
     Dosage: 1FL
     Route: 065
     Dates: start: 20081211
  9. DURAGESIC-100 [Concomitant]
     Indication: ANALGESIC THERAPY
     Dosage: 75 MICROGRAM
     Route: 065
     Dates: start: 20081204, end: 20081218
  10. MORPHINE [Concomitant]
     Indication: ANALGESIC THERAPY
     Route: 041
     Dates: start: 20081218
  11. PREDNISONE [Concomitant]
     Route: 041

REACTIONS (2)
  - MANTLE CELL LYMPHOMA [None]
  - PNEUMONIA BACTERIAL [None]
